FAERS Safety Report 24724970 (Version 2)
Quarter: 2024Q4

REPORT INFORMATION
  Report Type: Spontaneous
  Country: US (occurrence: US)
  Receive Date: 20241212
  Receipt Date: 20241231
  Transmission Date: 20250114
  Serious: Yes (Hospitalization)
  Sender: TEVA
  Company Number: US-TEVA-VS-3272015

PATIENT
  Age: 71 Year
  Sex: Female

DRUGS (4)
  1. PREDNISONE [Suspect]
     Active Substance: PREDNISONE
     Indication: Rheumatoid arthritis
     Route: 065
  2. TOBRAMYCIN [Suspect]
     Active Substance: TOBRAMYCIN\TOBRAMYCIN SULFATE
     Indication: Medical device site joint infection
     Dosage: TOBRAMYCIN SPACERS
     Route: 065
  3. VANCOMYCIN [Concomitant]
     Active Substance: VANCOMYCIN
     Indication: Medical device site joint infection
     Dosage: VANCOMYCIN SPACERS
     Route: 065
  4. AMPICILLIN [Suspect]
     Active Substance: AMPICILLIN
     Indication: Medical device site joint infection
     Route: 065

REACTIONS (6)
  - Renal tubular injury [Recovered/Resolved]
  - Unmasking of previously unidentified disease [Recovered/Resolved]
  - Renal failure [Recovered/Resolved]
  - Tubulointerstitial nephritis [Recovered/Resolved]
  - Acute kidney injury [Recovered/Resolved]
  - Glomerulonephritis membranoproliferative [Recovered/Resolved]
